FAERS Safety Report 22687389 (Version 3)
Quarter: 2025Q4

REPORT INFORMATION
  Report Type: Spontaneous
  Country: EU (occurrence: EU)
  Receive Date: 20230710
  Receipt Date: 20251111
  Transmission Date: 20260117
  Serious: Yes (Hospitalization, Disabling, Other)
  Sender: PFIZER
  Company Number: EU-THERAMEX-2023000455

PATIENT
  Age: 40 Year
  Sex: Female
  Weight: 73 kg

DRUGS (11)
  1. ETHINYL ESTRADIOL\LEVONORGESTREL [Suspect]
     Active Substance: ETHINYL ESTRADIOL\LEVONORGESTREL
     Indication: Contraception
     Dosage: UNK
     Dates: start: 2009, end: 2010
  2. ETHINYL ESTRADIOL\LEVONORGESTREL [Suspect]
     Active Substance: ETHINYL ESTRADIOL\LEVONORGESTREL
     Indication: Breast pain
     Dosage: RE-INITIATED IN 2010, AFTER PREGNANCY AND AFTER LUTERAN
     Dates: start: 2010
  3. ETHINYL ESTRADIOL\LEVONORGESTREL [Suspect]
     Active Substance: ETHINYL ESTRADIOL\LEVONORGESTREL
     Indication: Pelvic pain
  4. ETHINYL ESTRADIOL\LEVONORGESTREL [Suspect]
     Active Substance: ETHINYL ESTRADIOL\LEVONORGESTREL
     Indication: Ovarian disorder
  5. NOMEGESTROL ACETATE [Suspect]
     Active Substance: NOMEGESTROL ACETATE
     Indication: Pelvic pain
     Dosage: 1 DF, 1X/DAY
     Dates: start: 2000, end: 200305
  6. NOMEGESTROL ACETATE [Suspect]
     Active Substance: NOMEGESTROL ACETATE
     Indication: Ovarian disorder
     Dosage: 2 DF, WEEKLY
     Dates: start: 200305, end: 2009
  7. NOMEGESTROL ACETATE [Suspect]
     Active Substance: NOMEGESTROL ACETATE
     Indication: Breast pain
  8. CHLORMADINONE ACETATE [Suspect]
     Active Substance: CHLORMADINONE ACETATE
     Indication: Pelvic pain
     Dosage: AFTER PREGNANCY AND BEFORE RE-INTRODUCTION OF MINIDRIL
     Dates: start: 2010, end: 2010
  9. CHLORMADINONE ACETATE [Suspect]
     Active Substance: CHLORMADINONE ACETATE
     Indication: Ovarian disorder
  10. CHLORMADINONE ACETATE [Suspect]
     Active Substance: CHLORMADINONE ACETATE
     Indication: Contraception
  11. CHLORMADINONE ACETATE [Suspect]
     Active Substance: CHLORMADINONE ACETATE
     Indication: Breast pain

REACTIONS (22)
  - Meningioma benign [Recovered/Resolved with Sequelae]
  - Disease progression [Recovered/Resolved with Sequelae]
  - Asthenia [Unknown]
  - Hepatitis E [Unknown]
  - Optic neuritis [Not Recovered/Not Resolved]
  - Blindness unilateral [Recovered/Resolved with Sequelae]
  - Delirium [Unknown]
  - Jaundice [Unknown]
  - Ear canal injury [Unknown]
  - Impaired work ability [Unknown]
  - Migraine [Unknown]
  - Ear pain [Unknown]
  - Dry eye [Unknown]
  - Stress [Unknown]
  - Photophobia [Unknown]
  - Eye pain [Unknown]
  - Abnormal sensation in eye [Unknown]
  - Headache [Unknown]
  - Dizziness [Unknown]
  - Mixed anxiety and depressive disorder [Unknown]
  - Fatigue [Unknown]
  - Vertigo [Unknown]

NARRATIVE: CASE EVENT DATE: 20100101
